FAERS Safety Report 18688704 (Version 1)
Quarter: 2020Q4

REPORT INFORMATION
  Report Type: Other
  Country: GB (occurrence: GB)
  Receive Date: 20201231
  Receipt Date: 20201231
  Transmission Date: 20210114
  Serious: Yes (Other)
  Sender: FDA-Public Use
  Company Number: GB-ROCHE-2741553

PATIENT
  Sex: Male

DRUGS (1)
  1. ESBRIET [Suspect]
     Active Substance: PIRFENIDONE
     Indication: PRODUCT USED FOR UNKNOWN INDICATION
     Dosage: HALF OF MEDICATION DUE TO TAKING 6 TABLETS PER DAY NOT 9 TABLETS PER DAY AS PRESCRIBED.
     Route: 048

REACTIONS (1)
  - Illness [Unknown]
